FAERS Safety Report 7270450-7 (Version None)
Quarter: 2011Q1

REPORT INFORMATION
  Report Type: 
  Country: None (occurrence: None)
  Receive Date: 20110202
  Receipt Date: 20110125
  Transmission Date: 20110831
  Serious: Yes (Death, Hospitalization, Other)
  Sender: FDA-Public Use
  Company Number: JP-BRISTOL-MYERS SQUIBB COMPANY-14642854

PATIENT
  Age: 35 Year
  Sex: Male
  Weight: 70 kg

DRUGS (8)
  1. AMBISOME [Suspect]
     Indication: ADVERSE EVENT
     Route: 042
     Dates: start: 20090528, end: 20090602
  2. MUCOSTA [Concomitant]
     Indication: PROPHYLAXIS AGAINST GASTROINTESTINAL ULCER
     Route: 048
     Dates: start: 20090327
  3. ZYLORIC [Concomitant]
     Route: 048
     Dates: start: 20090327, end: 20090402
  4. POTASSIUM CHLORIDE [Concomitant]
     Dosage: TABS
     Route: 048
     Dates: start: 20090520, end: 20090608
  5. SPRYCEL [Suspect]
     Indication: BLAST CRISIS IN MYELOGENOUS LEUKAEMIA
     Dosage: INTERRUPTED ON 20MAY09 + RESTARTED ON 27MAY09 100 MG DAILY, 100MG/DAY, 27MAY09/28JUL09
     Route: 048
     Dates: start: 20090327
  6. IMATINIB MESYLATE [Concomitant]
     Dates: start: 20060222, end: 20090326
  7. CRAVIT [Concomitant]
     Indication: INFECTION
     Route: 048
     Dates: start: 20090609
  8. BAKTAR [Concomitant]
     Indication: INFECTION
     Dosage: 1DF=1 TABLET
     Route: 048
     Dates: start: 20090623

REACTIONS (9)
  - PNEUMONIA [None]
  - ANAEMIA [None]
  - HYPOKALAEMIA [None]
  - NAUSEA [None]
  - NEOPLASM MALIGNANT [None]
  - FULL BLOOD COUNT DECREASED [None]
  - PANCYTOPENIA [None]
  - MOUTH HAEMORRHAGE [None]
  - PYREXIA [None]
